FAERS Safety Report 4651466-3 (Version None)
Quarter: 2005Q2

REPORT INFORMATION
  Report Type: 
  Country: None (occurrence: None)
  Receive Date: 20050404
  Receipt Date: 20050113
  Transmission Date: 20051028
  Serious: No
  Sender: FDA-Public Use
  Company Number: US_0501111562

PATIENT
  Sex: Female

DRUGS (1)
  1. CYMBALTA [Suspect]
     Dosage: 60 MG
     Dates: start: 20041201, end: 20041201

REACTIONS (3)
  - ACUTE PSYCHOSIS [None]
  - EUPHORIC MOOD [None]
  - PARANOIA [None]
